FAERS Safety Report 18224237 (Version 2)
Quarter: 2020Q3

REPORT INFORMATION
  Report Type: Report from Study
  Country: IE (occurrence: IE)
  Receive Date: 20200902
  Receipt Date: 20200918
  Transmission Date: 20201103
  Serious: Yes (Other)
  Sender: FDA-Public Use
  Company Number: IE-BRISTOL-MYERS SQUIBB COMPANY-BMS-2020-052230

PATIENT
  Age: 61 Year
  Sex: Male

DRUGS (2)
  1. NIVOLUMAB [Suspect]
     Active Substance: NIVOLUMAB
     Indication: MALIGNANT MELANOMA
     Dosage: UNK UNK, QMO
     Route: 065
     Dates: start: 20200512
  2. NIVOLUMAB [Suspect]
     Active Substance: NIVOLUMAB
     Dosage: UNK
     Route: 065
     Dates: start: 20200508

REACTIONS (5)
  - Lower respiratory tract infection [Not Recovered/Not Resolved]
  - Headache [Recovered/Resolved]
  - Eye infection [Unknown]
  - Vision blurred [Recovered/Resolved]
  - Ephelides [Unknown]

NARRATIVE: CASE EVENT DATE: 20200708
